FAERS Safety Report 18740811 (Version 1)
Quarter: 2021Q1

REPORT INFORMATION
  Report Type: Spontaneous
  Country: CA (occurrence: CA)
  Receive Date: 20210114
  Receipt Date: 20210114
  Transmission Date: 20210419
  Serious: Yes (Other)
  Sender: FDA-Public Use
  Company Number: CA-CLINIGEN GROUP PLC/ CLINIGEN HEALTHCARE LTD-CA-CLGN-21-00007

PATIENT
  Age: 60 Year
  Sex: Female

DRUGS (2)
  1. FOSCARNET SODIUM. [Suspect]
     Active Substance: FOSCARNET SODIUM
     Indication: HUMAN HERPESVIRUS 6 ENCEPHALITIS
  2. GANCICLOVIR. [Concomitant]
     Active Substance: GANCICLOVIR
     Indication: HUMAN HERPESVIRUS 6 ENCEPHALITIS

REACTIONS (2)
  - Renal salt-wasting syndrome [Unknown]
  - Off label use [Unknown]
